FAERS Safety Report 16564374 (Version 2)
Quarter: 2019Q3

REPORT INFORMATION
  Report Type: Spontaneous
  Country: FR (occurrence: FR)
  Receive Date: 20190712
  Receipt Date: 20190717
  Transmission Date: 20191004
  Serious: Yes (Life-Threatening, Hospitalization, Other)
  Sender: FDA-Public Use
  Company Number: FR-ACCORD-138242

PATIENT
  Age: 87 Year
  Sex: Male

DRUGS (7)
  1. ALDACTONE [Interacting]
     Active Substance: SPIRONOLACTONE
     Indication: HYPERTENSION
     Route: 048
  2. DICLOFENAC [Interacting]
     Active Substance: DICLOFENAC
     Indication: SCIATICA
     Route: 048
     Dates: start: 20190611, end: 20190617
  3. FLECAINE L.P. [Concomitant]
     Active Substance: FLECAINIDE
     Dosage: STRENGTH: 150 MG
  4. FUROSEMIDE. [Suspect]
     Active Substance: FUROSEMIDE
     Indication: HYPERTENSION
     Route: 048
  5. PARACETAMOL [Concomitant]
     Active Substance: ACETAMINOPHEN
  6. DICLOFENAC [Interacting]
     Active Substance: DICLOFENAC
     Indication: SCIATICA
     Route: 003
     Dates: start: 20190611, end: 20190617
  7. ESOMEPRAZOLE/ESOMEPRAZOLE MAGNESIUM/ESOMEPRAZOLE SODIUM [Concomitant]

REACTIONS (4)
  - Acute kidney injury [Recovering/Resolving]
  - Drug interaction [Unknown]
  - Hyperkalaemia [Recovered/Resolved]
  - Malaise [Recovered/Resolved]

NARRATIVE: CASE EVENT DATE: 20190617
